FAERS Safety Report 6137723-2 (Version None)
Quarter: 2009Q1

REPORT INFORMATION
  Report Type: 
  Country: None (occurrence: None)
  Receive Date: 20090331
  Receipt Date: 20090324
  Transmission Date: 20090719
  Serious: Yes (Death, Hospitalization)
  Sender: FDA-Public Use
  Company Number: JP-CELGENEUS-087-CCAMR-09030525

PATIENT
  Sex: Male

DRUGS (3)
  1. CALSED [Suspect]
     Indication: NON-SMALL CELL LUNG CANCER
     Route: 065
     Dates: start: 20090217, end: 20090219
  2. IRESSA [Suspect]
     Indication: DRUG USE FOR UNKNOWN INDICATION
     Route: 048
     Dates: start: 20090101
  3. FLUID [Concomitant]
     Indication: DRUG USE FOR UNKNOWN INDICATION
     Route: 065
     Dates: start: 20090301

REACTIONS (6)
  - DIARRHOEA [None]
  - LEUKOPENIA [None]
  - SEPSIS [None]
  - SEPTIC SHOCK [None]
  - STOMATITIS [None]
  - THROMBOCYTOPENIA [None]
